FAERS Safety Report 12220848 (Version 2)
Quarter: 2016Q2

REPORT INFORMATION
  Report Type: Spontaneous
  Country: US (occurrence: US)
  Receive Date: 20160330
  Receipt Date: 20160421
  Transmission Date: 20160815
  Serious: No
  Sender: FDA-Public Use
  Company Number: US-PFIZER INC-2016177501

PATIENT
  Age: 62 Year
  Sex: Male

DRUGS (8)
  1. TRAVATAN Z [Concomitant]
     Active Substance: TRAVOPROST
     Dosage: UNK
  2. OMEGA -3 ETHYL ESTERS [Concomitant]
     Dosage: UNK
  3. XELJANZ [Suspect]
     Active Substance: TOFACITINIB CITRATE
     Indication: RHEUMATOID ARTHRITIS
     Dosage: 5MG TWICE A DAY
     Dates: start: 20160302
  4. METHOTREXATE [Concomitant]
     Active Substance: METHOTREXATE
     Dosage: UNK
  5. AMLODIPINE-VALSARTAN [Concomitant]
     Active Substance: AMLODIPINE\VALSARTAN
     Dosage: UNK (AMLODIPINE: 5 MG; VALSARTAN: 320 MG)
  6. ATORVASTATIN [Concomitant]
     Active Substance: ATORVASTATIN
     Dosage: UNK
  7. CELEBREX [Concomitant]
     Active Substance: CELECOXIB
     Dosage: UNK
  8. FOLIC ACID. [Concomitant]
     Active Substance: FOLIC ACID
     Dosage: UNK

REACTIONS (3)
  - Acne [Unknown]
  - Pruritus [Unknown]
  - Rash [Not Recovered/Not Resolved]

NARRATIVE: CASE EVENT DATE: 20160303
